FAERS Safety Report 25469221 (Version 1)
Quarter: 2025Q2

REPORT INFORMATION
  Report Type: Spontaneous
  Country: FR (occurrence: FR)
  Receive Date: 20250623
  Receipt Date: 20250623
  Transmission Date: 20250716
  Serious: Yes (Other)
  Sender: MYLAN
  Company Number: None

PATIENT
  Age: 35 Year
  Sex: Male
  Weight: 65 kg

DRUGS (8)
  1. DOXYCYCLINE [Suspect]
     Active Substance: DOXYCYCLINE
     Indication: Endocarditis Q fever
     Dosage: 400 MILLIGRAM, QD
     Dates: start: 20220722
  2. DOXYCYCLINE [Suspect]
     Active Substance: DOXYCYCLINE
     Dosage: 400 MILLIGRAM, QD
     Route: 048
     Dates: start: 20220722
  3. DOXYCYCLINE [Suspect]
     Active Substance: DOXYCYCLINE
     Dosage: 400 MILLIGRAM, QD
     Route: 048
     Dates: start: 20220722
  4. DOXYCYCLINE [Suspect]
     Active Substance: DOXYCYCLINE
     Dosage: 400 MILLIGRAM, QD
     Dates: start: 20220722
  5. PLAQUENIL [Suspect]
     Active Substance: HYDROXYCHLOROQUINE SULFATE
     Indication: Endocarditis Q fever
     Dosage: 3 DOSAGE FORM, QD
     Dates: start: 20220722
  6. PLAQUENIL [Suspect]
     Active Substance: HYDROXYCHLOROQUINE SULFATE
     Dosage: 3 DOSAGE FORM, QD
     Route: 048
     Dates: start: 20220722
  7. PLAQUENIL [Suspect]
     Active Substance: HYDROXYCHLOROQUINE SULFATE
     Dosage: 3 DOSAGE FORM, QD
     Route: 048
     Dates: start: 20220722
  8. PLAQUENIL [Suspect]
     Active Substance: HYDROXYCHLOROQUINE SULFATE
     Dosage: 3 DOSAGE FORM, QD
     Dates: start: 20220722

REACTIONS (1)
  - Blood creatine phosphokinase increased [Not Recovered/Not Resolved]

NARRATIVE: CASE EVENT DATE: 20230913
